FAERS Safety Report 14844405 (Version 2)
Quarter: 2018Q3

REPORT INFORMATION
  Report Type: Spontaneous
  Country: US (occurrence: US)
  Receive Date: 20180503
  Receipt Date: 20180726
  Transmission Date: 20181010
  Serious: No
  Sender: FDA-Public Use
  Company Number: US-009507513-1804USA012072

PATIENT
  Age: 33 Year
  Sex: Female

DRUGS (4)
  1. ISENTRESS [Suspect]
     Active Substance: RALTEGRAVIR POTASSIUM
     Dosage: 400 DOSE DAILY
     Route: 048
     Dates: start: 200905
  2. EMTRICITABINE (+) TENOFOVIR DISOPROXIL FUMARATE [Suspect]
     Active Substance: EMTRICITABINE\TENOFOVIR DISOPROXIL
     Dosage: 1 DOSE DAILY
     Route: 048
     Dates: start: 200905
  3. ATAZANAVIR SULFATE. [Suspect]
     Active Substance: ATAZANAVIR SULFATE
     Dosage: 300 DOSE DAILY
     Route: 048
     Dates: start: 200905
  4. RITONAVIR. [Suspect]
     Active Substance: RITONAVIR
     Dosage: 100 DOSE DAILY
     Route: 048
     Dates: start: 200905

REACTIONS (3)
  - Maternal exposure during pregnancy [Recovered/Resolved]
  - Maternal exposure before pregnancy [Recovered/Resolved]
  - No adverse event [Unknown]
